FAERS Safety Report 21741382 (Version 1)
Quarter: 2022Q4

REPORT INFORMATION
  Report Type: Spontaneous
  Country: ES (occurrence: ES)
  Receive Date: 20221216
  Receipt Date: 20221216
  Transmission Date: 20230113
  Serious: Yes (Hospitalization)
  Sender: FDA-Public Use
  Company Number: None

PATIENT
  Age: 59 Year
  Sex: Male

DRUGS (11)
  1. IRINOTECAN [Suspect]
     Active Substance: IRINOTECAN
     Indication: Pancreatic carcinoma
     Dosage: 129.0 MG EVERY 21 DAYS
     Dates: start: 20220929
  2. MASTICAL D UNIDIA 1000 MG/800 IU CHEWABLE TABLETS, 30 tablets [Concomitant]
     Indication: Calcium metabolism disorder
     Dosage: 1 TABLET AFTER LUNCH AND DINNER
     Route: 048
     Dates: start: 20221011
  3. OXYNORM 20 MG CAPSULES, HARD, 28 capsules [Concomitant]
     Indication: Tobacco abuse
     Dosage: 20 MG EVERY 6 HOURS
     Route: 048
     Dates: start: 20221011
  4. PARACETAMOL CINFA 1 G TABLETS EFG, 40 TABLETS [Concomitant]
     Indication: Tobacco abuse
     Dosage: 1 GRAM AFTER LUNCH AND DINNER
     Route: 048
     Dates: start: 20220704
  5. BENADON 300 MG FILM-COATED TABLETS, 20 TABLETS [Concomitant]
     Indication: Iron deficiency anaemia
     Dosage: 300 MG AFTER BREAKFAST
     Route: 048
     Dates: start: 20210825
  6. IBUPROFENO CINFA 600 MG FILM-COATED TABLETS EFG, 40 TABLETS [Concomitant]
     Indication: Spinal pain
     Dosage: 600 MG EVERY 12 HOURS
     Route: 048
     Dates: start: 20220921, end: 20221120
  7. DELTIUS 25.000 UI/ 2.5 ML ORAL SOLUTION, 4 BOTTLES OF 2.5 ML [Concomitant]
     Indication: Vitamin D deficiency
     Dosage: 25000.0 IU EVERY 30 DAYS
     Route: 048
     Dates: start: 20200930
  8. TARGIN 5 MG/ 2.5 MG PROLONGED-RELEASE TABLETS, 56 TABLETS [Concomitant]
     Indication: Tobacco abuse
     Dosage: 5.0 MG EVERY 12 HOURS
     Route: 048
     Dates: start: 20221011
  9. KREON 35.000 U GASTRORESISTANT HARD CAPSULES, 100 CAPSULES [Concomitant]
     Indication: Pancreatic carcinoma
     Dosage: 1 CAPSULE AFTER LUNCH AFTERNOON SNACK
     Route: 048
     Dates: start: 20221011
  10. OMEPRAZOL CINFAMED 40 MG  GASTRORESISTANT HARD CAPSULES, 56 CAPSULES ( [Concomitant]
     Indication: Pancreatic carcinoma
     Dosage: 40 MG BEFORE BREAK FAST
     Route: 048
     Dates: start: 20200826
  11. TARGIN 40 MG/20 MG PROLONGED-RELEASE TABLETS, 56 TABLETS [Concomitant]
     Indication: Iron deficiency anaemia
     Dosage: 40 MG EVERY 12 HOURS
     Route: 048
     Dates: start: 20220912

REACTIONS (2)
  - Hypocalcaemia [Recovered/Resolved]
  - Hypophosphataemia [Recovered/Resolved]

NARRATIVE: CASE EVENT DATE: 20221121
